FAERS Safety Report 9308216 (Version 1)
Quarter: 2013Q2

REPORT INFORMATION
  Report Type: Spontaneous
  Country: US (occurrence: US)
  Receive Date: 20130523
  Receipt Date: 20130523
  Transmission Date: 20140414
  Serious: Yes (Hospitalization, Other)
  Sender: FDA-Public Use
  Company Number: US-RB-053303-13

PATIENT
  Sex: Female
  Weight: 108 kg

DRUGS (5)
  1. SUBOXONE TABLET [Suspect]
     Indication: DRUG DEPENDENCE
     Dosage: STARTED WITH 24 MG/DAILY AND TAPERD OFF AFTER FEW MONTHS
     Route: 060
     Dates: start: 2003
  2. SUBOXONE TABLET [Suspect]
     Route: 060
     Dates: end: 201204
  3. SUBOXONE FILM [Suspect]
     Indication: DRUG DEPENDENCE
     Dosage: SUBOXONE FILM
     Route: 060
     Dates: start: 201204
  4. KLONOPIN [Concomitant]
     Indication: PANIC ATTACK
     Route: 048
     Dates: start: 2003
  5. POTASSIUM [Concomitant]
     Indication: PRODUCT USED FOR UNKNOWN INDICATION
     Dosage: DOSING DETAILS UNKNOWN
     Route: 048

REACTIONS (7)
  - Drug dependence [Not Recovered/Not Resolved]
  - Dry mouth [Unknown]
  - Teeth brittle [Recovered/Resolved]
  - Dental caries [Recovered/Resolved]
  - Oedema [Not Recovered/Not Resolved]
  - Weight increased [Not Recovered/Not Resolved]
  - Blood pressure increased [Not Recovered/Not Resolved]
